FAERS Safety Report 9404076 (Version 2)
Quarter: 2013Q3

REPORT INFORMATION
  Report Type: Spontaneous
  Country: JP (occurrence: None)
  Receive Date: 20130712
  Receipt Date: 20130716
  Transmission Date: 20140515
  Serious: Yes (Hospitalization)
  Sender: FDA-Public Use
  Company Number: TCI2013A04019

PATIENT
  Age: 63 Year
  Sex: Female

DRUGS (2)
  1. LIOVEL COMBINATION TABLETS (ALOGLIPTIN BENZOATE, PIOGLITAZONE HYDROCHLORIDE) [Suspect]
     Indication: TYPE 2 DIABETES MELLITUS
     Dosage: 1 TAB (1 TAB, 1 IN 1 D), PO
     Route: 048
     Dates: start: 20120620
  2. AMARYL (GLIMEPIRIDE) [Concomitant]

REACTIONS (3)
  - Pneumonia [None]
  - Otitis media [None]
  - Pharyngitis [None]
